FAERS Safety Report 14281497 (Version 2)
Quarter: 2017Q4

REPORT INFORMATION
  Report Type: Spontaneous
  Country: IN (occurrence: IN)
  Receive Date: 20171213
  Receipt Date: 20171215
  Transmission Date: 20180321
  Serious: Yes (Hospitalization, Other)
  Sender: FDA-Public Use
  Company Number: IN-PFIZER INC-2017526543

PATIENT
  Age: 26 Year
  Sex: Male

DRUGS (4)
  1. ATROPINE SULFATE. [Suspect]
     Active Substance: ATROPINE SULFATE
     Indication: CHEMICAL POISONING
     Dosage: 10 ML, CYCLIC: BOLUS DOSES, REQUIRED UP TO 10 MG OF ATROPINE
     Route: 040
  2. PRALIDOXIME [Concomitant]
     Dosage: 1 G, 3X/DAY
     Route: 042
  3. ATROPINE SULFATE. [Suspect]
     Active Substance: ATROPINE SULFATE
     Dosage: UNK(0.5ML/HR)(TAPERING THE DOSE)
     Route: 040
  4. SALINE [Concomitant]
     Active Substance: SODIUM CHLORIDE
     Dosage: 100 ML, 3X/DAY

REACTIONS (2)
  - Psychotic disorder [Recovering/Resolving]
  - Toxicity to various agents [Recovering/Resolving]
